FAERS Safety Report 5173193-9 (Version None)
Quarter: 2006Q4

REPORT INFORMATION
  Report Type: 
  Country: None (occurrence: None)
  Receive Date: 20061214
  Receipt Date: 20061204
  Transmission Date: 20070319
  Serious: Yes (Death)
  Sender: FDA-Public Use
  Company Number: SE-JNJFOC-20061201243

PATIENT
  Age: 54 Year
  Sex: Female

DRUGS (10)
  1. REMICADE [Suspect]
     Route: 042
  2. REMICADE [Suspect]
     Indication: INFLAMMATION
     Dosage: THREE DOSES
     Route: 042
  3. SENDOXAN [Concomitant]
     Route: 065
  4. OMEPRAZOLE [Concomitant]
  5. KALCIPOS [Concomitant]
  6. FOSAMAX [Concomitant]
  7. EUSAPRIM [Concomitant]
  8. PREDNISOLONE [Concomitant]
  9. ALVEDON [Concomitant]
  10. XERODENT [Concomitant]

REACTIONS (1)
  - DEATH [None]
